FAERS Safety Report 14598365 (Version 1)
Quarter: 2018Q1

REPORT INFORMATION
  Report Type: Spontaneous
  Country: GB (occurrence: US)
  Receive Date: 20180304
  Receipt Date: 20180304
  Transmission Date: 20180509
  Serious: Yes (Disabling, Other)
  Sender: FDA-Public Use
  Company Number: None

PATIENT
  Age: 28 Year
  Sex: Female
  Weight: 150 kg

DRUGS (1)
  1. COPPER IUD [Suspect]
     Active Substance: COPPER
     Indication: CONTRACEPTION
     Dosage: ?          QUANTITY:1 LUD;?

REACTIONS (22)
  - Furuncle [None]
  - Dry skin [None]
  - Dizziness [None]
  - Metal poisoning [None]
  - General physical health deterioration [None]
  - Skin odour abnormal [None]
  - Lethargy [None]
  - Mood swings [None]
  - Arthralgia [None]
  - Pruritus [None]
  - Emotional disorder [None]
  - Weight increased [None]
  - Fatigue [None]
  - Delirium [None]
  - Palpitations [None]
  - Thinking abnormal [None]
  - Obsessive thoughts [None]
  - Premenstrual dysphoric disorder [None]
  - Pain [None]
  - Anxiety [None]
  - Stress [None]
  - Myalgia [None]

NARRATIVE: CASE EVENT DATE: 20170615
